FAERS Safety Report 5466670-4 (Version None)
Quarter: 2007Q3

REPORT INFORMATION
  Report Type: 
  Country: None (occurrence: None)
  Receive Date: 20070924
  Receipt Date: 20070924
  Transmission Date: 20080115
  Serious: Yes (Other)
  Sender: FDA-Public Use
  Company Number: None

PATIENT
  Age: 47 Year
  Sex: Male
  Weight: 88.905 kg

DRUGS (1)
  1. HYDROXYUREA [Suspect]
     Indication: POLYCYTHAEMIA VERA
     Dosage: 500 MG 1 PO QD
     Route: 048

REACTIONS (1)
  - ABDOMINAL PAIN [None]
